FAERS Safety Report 7753634-0 (Version None)
Quarter: 2011Q3

REPORT INFORMATION
  Report Type: 
  Country: None (occurrence: None)
  Receive Date: 20110915
  Receipt Date: 20110909
  Transmission Date: 20111222
  Serious: Yes (Other)
  Sender: FDA-Public Use
  Company Number: JP-GLAXOSMITHKLINE-B0746906A

PATIENT

DRUGS (11)
  1. TEGRETOL [Concomitant]
     Route: 048
  2. NEULEPTIL [Concomitant]
     Route: 048
  3. FAMOTIDINE [Concomitant]
     Route: 065
  4. SEROQUEL [Concomitant]
     Route: 048
  5. ZOLPIDEM [Concomitant]
     Route: 048
  6. FLUNITRAZEPAM [Concomitant]
     Route: 065
  7. HIRNAMIN [Concomitant]
     Route: 048
  8. LAMICTAL [Suspect]
     Indication: BIPOLAR DISORDER
     Route: 048
     Dates: start: 20110701
  9. AKINETON [Concomitant]
     Route: 048
  10. AMITRIPTYLINE HCL [Concomitant]
     Route: 048
  11. ETHYL LOFLAZEPATE [Concomitant]
     Route: 048

REACTIONS (1)
  - GAZE PALSY [None]
